FAERS Safety Report 5000761-7 (Version None)
Quarter: 2006Q2

REPORT INFORMATION
  Report Type: 
  Country: None (occurrence: None)
  Receive Date: 20060512
  Receipt Date: 20060406
  Transmission Date: 20061013
  Serious: Yes (Death)
  Sender: FDA-Public Use
  Company Number: US-MERCK-0604USA00932

PATIENT
  Age: 59 Year
  Sex: Male
  Weight: 91 kg

DRUGS (2)
  1. VIOXX [Suspect]
     Indication: POLYNEUROPATHY
     Route: 048
     Dates: start: 20031201, end: 20040423
  2. VIOXX [Suspect]
     Indication: ARTHRALGIA
     Route: 048
     Dates: start: 20031201, end: 20040423

REACTIONS (8)
  - ACUTE MYOCARDIAL INFARCTION [None]
  - CORONARY ARTERY DISEASE [None]
  - DEMYELINATING POLYNEUROPATHY [None]
  - DRUG HYPERSENSITIVITY [None]
  - FATIGUE [None]
  - MALAISE [None]
  - SINUS DISORDER [None]
  - SWELLING [None]
